FAERS Safety Report 4729570-0 (Version None)
Quarter: 2005Q3

REPORT INFORMATION
  Report Type: 
  Country: None (occurrence: None)
  Receive Date: 20050801
  Receipt Date: 20050307
  Transmission Date: 20060218
  Serious: Yes (Hospitalization, Disabling)
  Sender: FDA-Public Use
  Company Number: US-MERCK-0503USA01232

PATIENT
  Age: 59 Year
  Sex: Male
  Weight: 84 kg

DRUGS (7)
  1. VIOXX [Suspect]
     Indication: PSORIATIC ARTHROPATHY
     Route: 048
     Dates: start: 19990801, end: 20020501
  2. VIOXX [Suspect]
     Route: 048
     Dates: start: 19990801, end: 20020501
  3. METHOTREXATE [Concomitant]
     Indication: PSORIATIC ARTHROPATHY
     Route: 065
     Dates: start: 20000101
  4. PREDNISONE [Concomitant]
     Indication: ARTHRITIS
     Route: 065
  5. PREDNISONE [Concomitant]
     Indication: NEUROPATHY
     Route: 065
  6. PREVACID [Concomitant]
     Indication: GASTROOESOPHAGEAL REFLUX DISEASE
     Route: 065
  7. DIFLUNISAL [Concomitant]
     Indication: PSORIATIC ARTHROPATHY
     Route: 065
     Dates: start: 20030201, end: 20030301

REACTIONS (11)
  - BLINDNESS UNILATERAL [None]
  - BLOOD CHOLESTEROL INCREASED [None]
  - CHEST PAIN [None]
  - FAT EMBOLISM [None]
  - HEADACHE [None]
  - HYPERTENSION [None]
  - RETINAL ARTERY EMBOLISM [None]
  - RETINAL ARTERY OCCLUSION [None]
  - RETINAL HAEMORRHAGE [None]
  - THROMBOSIS [None]
  - TRANSIENT ISCHAEMIC ATTACK [None]
